FAERS Safety Report 8975133 (Version 1)
Quarter: 2012Q4

REPORT INFORMATION
  Report Type: 
  Country: ES (occurrence: ES)
  Receive Date: 20121220
  Receipt Date: 20121220
  Transmission Date: 20130627
  Serious: Yes (Life-Threatening)
  Sender: FDA-Public Use
  Company Number: PHHY2012ES117586

PATIENT
  Age: 80 Year
  Sex: Female

DRUGS (8)
  1. MIACALCIC [Suspect]
     Indication: OSTEOPOROSIS
     Dosage: 200 IU, QD
     Route: 045
     Dates: start: 20091204, end: 201206
  2. OLMESARTAN MEDOXOMIL [Concomitant]
     Indication: OSTEOCHONDROSIS
     Dosage: UNK UKN, UNK
     Route: 048
     Dates: start: 20110503
  3. ESCITALOPRAM CINFA [Concomitant]
     Indication: OSTEOCHONDROSIS
     Dosage: UNK UKN, UNK
     Route: 048
     Dates: start: 20100524
  4. LEXATIN [Concomitant]
     Indication: ANXIETY
     Dosage: UNK UKN, UNK
     Route: 048
     Dates: start: 20070402
  5. LUDIOMIL [Concomitant]
     Indication: ANXIETY
     Dosage: UNK UKN, UNK
     Route: 048
     Dates: start: 20070402
  6. NOLOTIL [Concomitant]
     Indication: OSTEOCHONDROSIS
     Dosage: UNK UKN, UNK
     Route: 048
     Dates: start: 20100830
  7. OMEPRAZOL [Concomitant]
     Indication: OSTEOCHONDROSIS
     Dosage: UNK UKN, UNK
     Route: 048
     Dates: start: 20100830
  8. SEGURIL [Concomitant]
     Indication: OEDEMA PERIPHERAL
     Dosage: UNK UKN, UNK
     Dates: start: 20090824

REACTIONS (1)
  - Lung adenocarcinoma [Unknown]
